FAERS Safety Report 10060966 (Version 1)
Quarter: 2014Q2

REPORT INFORMATION
  Report Type: Spontaneous
  Country: US (occurrence: US)
  Receive Date: 20140405
  Receipt Date: 20140405
  Transmission Date: 20141212
  Serious: Yes (Death)
  Sender: FDA-Public Use
  Company Number: US-GE HEALTHCARE MEDICAL DIAGNOSTICS-OSCN-PR-0902S-0057

PATIENT
  Sex: Female
  Weight: 65.46 kg

DRUGS (4)
  1. GADOLINIUM ZEOLITE [Suspect]
     Indication: PRODUCT USED FOR UNKNOWN INDICATION
     Dates: start: 2005, end: 2005
  2. GADOLINIUM ZEOLITE [Suspect]
     Dates: start: 20060629, end: 20060629
  3. MULTIHANCE [Suspect]
     Indication: PRODUCT USED FOR UNKNOWN INDICATION
     Route: 042
     Dates: start: 20060629, end: 20060629
  4. MAGNEVIST [Suspect]
     Indication: PRODUCT USED FOR UNKNOWN INDICATION
     Route: 042
     Dates: start: 20060629, end: 20060629

REACTIONS (1)
  - Nephrogenic systemic fibrosis [Fatal]
